FAERS Safety Report 8206178-6 (Version None)
Quarter: 2012Q1

REPORT INFORMATION
  Report Type: 
  Country: None (occurrence: None)
  Receive Date: 20120313
  Receipt Date: 20120227
  Transmission Date: 20120608
  Serious: Yes (Hospitalization)
  Sender: FDA-Public Use
  Company Number: US-ROCHE-1019556

PATIENT
  Sex: Female

DRUGS (15)
  1. VITAMIN D [Concomitant]
     Route: 048
  2. PEROCEF [Concomitant]
     Route: 048
     Dates: start: 20120204, end: 20120217
  3. FLOVENT [Concomitant]
     Indication: ASTHMA
  4. ALBUTEROL [Concomitant]
     Indication: ASTHMA
  5. CALCIUM [Concomitant]
     Route: 048
  6. VITAMIN B-12 [Concomitant]
     Route: 048
  7. IRON [Concomitant]
     Indication: ANAEMIA
     Route: 048
  8. PREDNISONE TAB [Concomitant]
     Indication: ASTHMA
     Route: 048
  9. ADVAIR DISKUS 100/50 [Concomitant]
     Indication: ASTHMA
  10. OMALIZUMAB [Suspect]
     Indication: ASTHMA
     Route: 058
     Dates: start: 20080401
  11. OMALIZUMAB [Suspect]
     Route: 058
     Dates: start: 20111026
  12. VITAMIN AND MINERAL PRENATAL SUPPLEMENT W/ FOLIC ACID CAP [Concomitant]
     Indication: PREGNANCY
     Route: 048
  13. IRON NOS [Concomitant]
     Indication: ANAEMIA
     Route: 042
  14. SINGULAIR [Concomitant]
     Indication: ASTHMA
     Route: 048
  15. IBUPROFEN [Concomitant]
     Route: 048
     Dates: start: 20120204

REACTIONS (3)
  - ASTHMA [None]
  - SEROMA [None]
  - MATERNAL EXPOSURE DURING PREGNANCY [None]
